FAERS Safety Report 6111927-7 (Version None)
Quarter: 2009Q1

REPORT INFORMATION
  Report Type: 
  Country: None (occurrence: None)
  Receive Date: 20090311
  Receipt Date: 20090303
  Transmission Date: 20090719
  Serious: Yes (Hospitalization)
  Sender: FDA-Public Use
  Company Number: US-GENENTECH-277066

PATIENT
  Sex: Female
  Weight: 72.562 kg

DRUGS (2)
  1. AVASTIN [Suspect]
     Indication: BREAST CANCER METASTATIC
  2. NAVELBINE [Concomitant]
     Indication: DRUG USE FOR UNKNOWN INDICATION

REACTIONS (3)
  - HEPATIC NEOPLASM [None]
  - VIRAL INFECTION [None]
  - WHITE BLOOD CELL COUNT DECREASED [None]
